FAERS Safety Report 23173064 (Version 3)
Quarter: 2024Q1

REPORT INFORMATION
  Report Type: Spontaneous
  Country: US (occurrence: US)
  Receive Date: 20231110
  Receipt Date: 20240118
  Transmission Date: 20240410
  Serious: Yes (Other)
  Sender: FDA-Public Use
  Company Number: US-JNJFOC-20231105721

PATIENT
  Age: 30 Year
  Sex: Male

DRUGS (2)
  1. TREMFYA [Suspect]
     Active Substance: GUSELKUMAB
     Indication: Psoriasis
     Route: 058
     Dates: start: 20230725
  2. ZORYVE [Concomitant]
     Active Substance: ROFLUMILAST
     Indication: Psoriasis
     Route: 061
     Dates: start: 20230725

REACTIONS (1)
  - Vertigo [Recovered/Resolved]
